FAERS Safety Report 9450231 (Version 1)
Quarter: 2013Q3

REPORT INFORMATION
  Report Type: Report from Study
  Country: US (occurrence: US)
  Receive Date: 20130809
  Receipt Date: 20130809
  Transmission Date: 20140515
  Serious: Yes (Hospitalization)
  Sender: FDA-Public Use
  Company Number: PHHY2013US084135

PATIENT
  Age: 56 Year
  Sex: Female
  Weight: 66.8 kg

DRUGS (14)
  1. GILENYA [Suspect]
     Indication: MULTIPLE SCLEROSIS
     Dosage: 0.5 MG, QD
     Route: 048
     Dates: start: 20120208, end: 20120423
  2. AMARYL [Concomitant]
  3. TRILIPIX [Concomitant]
  4. BACLOFEN [Concomitant]
     Dosage: 10 MG, UNK
  5. COLACE [Concomitant]
  6. RESTASIS [Concomitant]
  7. ADVIL COLD [Concomitant]
  8. MULTI-VIT [Concomitant]
  9. AMITRIPTYLENE [Concomitant]
     Dosage: 25 MG, UNK
  10. DEXILANT [Concomitant]
     Dosage: 50 MG, UNK
  11. DOCUSATE [Concomitant]
  12. LIPITOR [Concomitant]
     Dosage: 40 MG, UNK
  13. TRIAMTERENE AND HYDROCHLOROTHIAZID [Concomitant]
  14. NUVIGIL [Concomitant]

REACTIONS (11)
  - Drug-induced liver injury [Unknown]
  - Hepatic enzyme increased [Recovered/Resolved]
  - Transaminases increased [Recovered/Resolved]
  - Amylase increased [Recovered/Resolved]
  - Jaundice [Unknown]
  - Chromaturia [Unknown]
  - Nausea [Unknown]
  - Faeces pale [Unknown]
  - Insomnia [Unknown]
  - Blood glucose increased [Unknown]
  - Blood pressure increased [Unknown]
